FAERS Safety Report 25544148 (Version 1)
Quarter: 2025Q3

REPORT INFORMATION
  Report Type: Spontaneous
  Country: GB (occurrence: None)
  Receive Date: 20250710
  Receipt Date: 20250710
  Transmission Date: 20251021
  Serious: Yes (Disabling)
  Sender: FDA-CTU
  Company Number: None

PATIENT
  Age: 33 Year
  Sex: Male
  Weight: 90 kg

DRUGS (7)
  1. VALIUM [Suspect]
     Active Substance: DIAZEPAM
  2. MIRTAZAPINE [Suspect]
     Active Substance: MIRTAZAPINE
  3. DIAZEPAM [Concomitant]
     Active Substance: DIAZEPAM
  4. MIANSERIN [Concomitant]
     Active Substance: MIANSERIN
  5. GABAPENTIN [Concomitant]
     Active Substance: GABAPENTIN
  6. VITAMIN C [Concomitant]
     Active Substance: ASCORBIC ACID
  7. nac omega 3 b1 [Concomitant]

REACTIONS (3)
  - Agitation [None]
  - Restlessness [None]
  - Amnesia [None]

NARRATIVE: CASE EVENT DATE: 20230501
